FAERS Safety Report 17781163 (Version 1)
Quarter: 2020Q2

REPORT INFORMATION
  Report Type: Report from Study
  Country: BR (occurrence: BR)
  Receive Date: 20200514
  Receipt Date: 20200514
  Transmission Date: 20200714
  Serious: Yes (Other)
  Sender: FDA-Public Use
  Company Number: ALC2019BR004418

PATIENT
  Sex: Male

DRUGS (2)
  1. DUO TRAVATAN [Suspect]
     Active Substance: TIMOLOL MALEATE\TRAVOPROST
     Indication: PRODUCT USED FOR UNKNOWN INDICATION
     Dosage: UNK
     Route: 065
     Dates: start: 201810
  2. SYSTANE (HYPROMELLOSE 2910 (4000 MPA.S)) [Suspect]
     Active Substance: HYPROMELLOSE 2910 (4000 MPA.S)
     Indication: PRODUCT USED FOR UNKNOWN INDICATION
     Dosage: UNK
     Route: 065

REACTIONS (3)
  - Deafness [Not Recovered/Not Resolved]
  - Ear pain [Not Recovered/Not Resolved]
  - Influenza [Not Recovered/Not Resolved]
